FAERS Safety Report 5963802-6 (Version None)
Quarter: 2008Q4

REPORT INFORMATION
  Report Type: 
  Country: None (occurrence: None)
  Receive Date: 20081120
  Receipt Date: 20081105
  Transmission Date: 20090506
  Serious: Yes (Death)
  Sender: FDA-Public Use
  Company Number: 2008US003074

PATIENT
  Age: 70 Year
  Sex: Male

DRUGS (5)
  1. PROGRAF [Suspect]
     Indication: RENAL TRANSPLANT
     Dosage: 6 MG, UID/QD, ORAL
     Route: 048
     Dates: start: 20080814
  2. PREDNISONE [Concomitant]
  3. MYCOPHENOLATE MOFETIL [Concomitant]
  4. TRIMETHOPRIM [Concomitant]
  5. METOPROLOL TARTRATE [Concomitant]

REACTIONS (2)
  - CARDIAC ARREST [None]
  - DIARRHOEA [None]
